FAERS Safety Report 6053007-5 (Version None)
Quarter: 2009Q1

REPORT INFORMATION
  Report Type: 
  Country: None (occurrence: None)
  Receive Date: 20090127
  Receipt Date: 20090119
  Transmission Date: 20090719
  Serious: Yes (Hospitalization)
  Sender: FDA-Public Use
  Company Number: JP-WYE-H06736308

PATIENT
  Age: 8 Year
  Sex: Male

DRUGS (1)
  1. PIPERACILLIN AND TAZOBACTAM [Suspect]
     Indication: PNEUMONIA
     Dosage: 6.75 GRAMS DAILY
     Route: 041
     Dates: start: 20081016, end: 20081024

REACTIONS (2)
  - CONDITION AGGRAVATED [None]
  - LIVER DISORDER [None]
